FAERS Safety Report 10378473 (Version 2)
Quarter: 2014Q3

REPORT INFORMATION
  Report Type: Other
  Country: NO (occurrence: NO)
  Receive Date: 20140812
  Receipt Date: 20140812
  Transmission Date: 20150326
  Serious: Yes (Death, Other)
  Sender: FDA-Public Use
  Company Number: NO-MYLAN-2014S1016417

PATIENT

DRUGS (15)
  1. SOMAC [Concomitant]
     Active Substance: PANTOPRAZOLE SODIUM
     Dosage: 40 MG,QD
     Route: 048
     Dates: start: 20140523
  2. IBUX [Concomitant]
     Active Substance: IBUPROFEN
     Dosage: 600 MG,TID
     Route: 048
     Dates: start: 20140411, end: 20140413
  3. MEDROL [Suspect]
     Active Substance: METHYLPREDNISOLONE
     Dosage: UNK
     Route: 048
     Dates: start: 201312, end: 20140426
  4. LANSOPRAZOLE. [Suspect]
     Active Substance: LANSOPRAZOLE
     Indication: PROPHYLAXIS AGAINST GASTROINTESTINAL ULCER
     Dosage: 30 MG,QD
     Route: 048
     Dates: start: 20140425, end: 20140509
  5. MEDROL [Suspect]
     Active Substance: METHYLPREDNISOLONE
     Indication: RHEUMATOID ARTHRITIS
     Dosage: 48 MG,QD
     Route: 048
     Dates: start: 20140426, end: 20140428
  6. METHOTREXATE [Suspect]
     Active Substance: METHOTREXATE
     Indication: RHEUMATOID ARTHRITIS
     Dosage: 10 MG,QW
     Route: 048
     Dates: start: 20010307, end: 20140501
  7. OCTAGAM IMMUNE GLOBULIN (HUMAN) [Concomitant]
     Active Substance: HUMAN IMMUNOGLOBULIN G
     Dosage: 30 G,QD
     Route: 041
     Dates: start: 20140426, end: 20140430
  8. FOLSYRE NAF [Concomitant]
     Active Substance: FOLIC ACID
     Indication: PROPHYLAXIS
     Dosage: 1 MG,QD
     Route: 048
  9. PREDNISOLON [Suspect]
     Active Substance: PREDNISOLONE
     Dosage: 50 MG,QD
     Route: 048
     Dates: start: 20140429
  10. CORDARONE [Interacting]
     Active Substance: AMIODARONE HYDROCHLORIDE
     Dosage: 200 MG,QD
     Route: 048
  11. FLUCONAZOLE. [Interacting]
     Active Substance: FLUCONAZOLE
     Indication: FUNGAL INFECTION
     Dosage: 200 MG,QD
     Route: 048
     Dates: start: 20140411, end: 20140508
  12. REMERON [Concomitant]
     Active Substance: MIRTAZAPINE
     Indication: DEPRESSION
     Dosage: 30 MG,QD
     Route: 048
     Dates: end: 20140502
  13. ALBYL-E [Concomitant]
     Active Substance: ASPIRIN\MAGNESIUM OXIDE
     Dosage: 160 MG,QD
     Route: 048
  14. NEXIUM [Concomitant]
     Active Substance: ESOMEPRAZOLE MAGNESIUM
     Indication: PROPHYLAXIS AGAINST GASTROINTESTINAL ULCER
     Dosage: 40 MG,QD
     Route: 048
     Dates: start: 20140509, end: 20140522
  15. CALCIGRAN FORTE [Concomitant]
     Indication: OSTEOPOROSIS PROPHYLAXIS
     Dosage: 1000 MG,QD
     Route: 048
     Dates: end: 20140502

REACTIONS (3)
  - Immunosuppression [Fatal]
  - Pancytopenia [Fatal]
  - Drug interaction [Unknown]

NARRATIVE: CASE EVENT DATE: 201404
